FAERS Safety Report 6313707-6 (Version None)
Quarter: 2009Q3

REPORT INFORMATION
  Report Type: 
  Country: None (occurrence: None)
  Receive Date: 20090817
  Receipt Date: 20090817
  Transmission Date: 20100115
  Serious: Yes (Hospitalization)
  Sender: FDA-Public Use
  Company Number: None

PATIENT
  Sex: Female
  Weight: 106 kg

DRUGS (4)
  1. CYTARABINE [Suspect]
     Dosage: 4400 MG
  2. DAUNORUBICIN HCL [Suspect]
     Dosage: 330 MG
  3. ETOPOSIDE [Suspect]
     Dosage: 1100 MG
  4. MYLOTARG [Suspect]
     Dosage: 6.6 MG

REACTIONS (8)
  - BLOOD CULTURE POSITIVE [None]
  - CAPNOCYTOPHAGIA INFECTION [None]
  - ECHOCARDIOGRAM ABNORMAL [None]
  - ENTEROCOCCAL INFECTION [None]
  - MULTI-ORGAN FAILURE [None]
  - NEUTROPENIA [None]
  - PYREXIA [None]
  - SEPTIC SHOCK [None]
